FAERS Safety Report 15516539 (Version 1)
Quarter: 2018Q4

REPORT INFORMATION
  Report Type: Spontaneous
  Country: US (occurrence: US)
  Receive Date: 20181017
  Receipt Date: 20181017
  Transmission Date: 20190205
  Serious: No
  Sender: FDA-Public Use
  Company Number: PHEH2018US042177

PATIENT
  Age: 61 Year
  Sex: Female

DRUGS (2)
  1. AMITRIPTYLINE [Suspect]
     Active Substance: AMITRIPTYLINE
     Indication: NEUROPATHY PERIPHERAL
     Dosage: UNK
     Route: 065
     Dates: start: 2018, end: 2018
  2. RUCAPARIB [Suspect]
     Active Substance: RUCAPARIB
     Indication: OVARIAN CANCER
     Dosage: 600 MG, BID
     Route: 048
     Dates: start: 20180619

REACTIONS (13)
  - Nausea [Unknown]
  - Constipation [Recovering/Resolving]
  - Dysgeusia [Unknown]
  - Dyskinesia [Unknown]
  - Skin burning sensation [Unknown]
  - Red blood cell count decreased [Unknown]
  - Vomiting [Unknown]
  - Blood creatinine increased [Unknown]
  - Abdominal pain upper [Recovered/Resolved]
  - Nodule [Unknown]
  - Carbohydrate antigen 125 increased [Unknown]
  - Fatigue [Recovered/Resolved]
  - Insomnia [Unknown]

NARRATIVE: CASE EVENT DATE: 201806
